FAERS Safety Report 4966848-X (Version None)
Quarter: 2006Q2

REPORT INFORMATION
  Report Type: 
  Country: None (occurrence: None)
  Receive Date: 20060407
  Receipt Date: 20050112
  Transmission Date: 20061013
  Serious: Yes (Hospitalization, Other)
  Sender: FDA-Public Use
  Company Number: US-MERCK-0501USA01892

PATIENT
  Age: 59 Year
  Sex: Female
  Weight: 77 kg

DRUGS (2)
  1. VIOXX [Suspect]
     Indication: BACK PAIN
     Route: 048
     Dates: start: 20000101, end: 20030401
  2. IBUPROFEN [Concomitant]
     Route: 065

REACTIONS (4)
  - CORONARY ARTERY OCCLUSION [None]
  - FALL [None]
  - MYOCARDIAL INFARCTION [None]
  - OVERDOSE [None]
